FAERS Safety Report 18127578 (Version 1)
Quarter: 2020Q3

REPORT INFORMATION
  Report Type: Spontaneous
  Country: US (occurrence: US)
  Receive Date: 20200810
  Receipt Date: 20200810
  Transmission Date: 20201103
  Serious: Yes (Other)
  Sender: FDA-Public Use
  Company Number: US-PFIZER INC-2020303839

PATIENT
  Sex: Male

DRUGS (6)
  1. XANAX [Suspect]
     Active Substance: ALPRAZOLAM
     Dosage: 4 DF, DAILY (2 MG XANAX 4 PER DAY 120 PER MONTH)
     Dates: start: 2010, end: 2013
  2. OXY [ACETYLSALICYLIC ACID] [Suspect]
     Active Substance: ASPIRIN
     Dosage: 6 DF, DAILY (30 MG OXY 6 PER DAY 180 PER MONTH)
     Dates: start: 2009, end: 2010
  3. SUBOXONE [Suspect]
     Active Substance: BUPRENORPHINE HYDROCHLORIDE\NALOXONE HYDROCHLORIDE
     Dosage: 3 DF, DAILY (THREE SUBOXONE 8 MG PER DAY 90 PER MONTH)
     Dates: start: 2014, end: 2017
  4. OXY [ACETYLSALICYLIC ACID] [Suspect]
     Active Substance: ASPIRIN
     Dosage: 2 DF, DAILY (40 MG OXY TWO PER DAY 60 PER MONTH )
     Dates: start: 2010, end: 2013
  5. OXY [ACETYLSALICYLIC ACID] [Suspect]
     Active Substance: ASPIRIN
     Dosage: 10 DF, DAILY (30 MG OXY 10 PER DAY 300 PER MONTH)
     Dates: start: 2010, end: 2013
  6. ADDERALL [Suspect]
     Active Substance: AMPHETAMINE ASPARTATE\AMPHETAMINE SULFATE\DEXTROAMPHETAMINE SACCHARATE\DEXTROAMPHETAMINE SULFATE
     Dosage: 3 DF, DAILY(30 MG  ADDERALL THREE PER DAY 90 PER MONTH)
     Dates: start: 2010, end: 2013

REACTIONS (6)
  - Pain [Unknown]
  - Road traffic accident [Unknown]
  - Disturbance in attention [Unknown]
  - Drug dependence [Unknown]
  - Confusional state [Unknown]
  - Migraine [Unknown]

NARRATIVE: CASE EVENT DATE: 20170310
